FAERS Safety Report 12251013 (Version 4)
Quarter: 2016Q2

REPORT INFORMATION
  Report Type: Spontaneous
  Country: JP (occurrence: JP)
  Receive Date: 20160409
  Receipt Date: 20160606
  Transmission Date: 20160815
  Serious: Yes (Hospitalization, Other)
  Sender: FDA-Public Use
  Company Number: JP-AMGEN-JPNSP2016039362

PATIENT
  Age: 68 Year
  Sex: Female
  Weight: 60 kg

DRUGS (24)
  1. G-LASTA [Suspect]
     Active Substance: PEGFILGRASTIM
     Indication: PRODUCT USED FOR UNKNOWN INDICATION
     Dosage: 3.6 MG, UNK
     Route: 058
     Dates: start: 20160308
  2. FUNGUARD [Concomitant]
     Active Substance: MICAFUNGIN SODIUM
     Dosage: UNK
     Route: 041
     Dates: start: 20160324
  3. ALOXI [Concomitant]
     Active Substance: PALONOSETRON HYDROCHLORIDE
     Dosage: 0.75 MG, UNK
     Route: 041
     Dates: start: 20160229, end: 20160229
  4. SEROTONE [Concomitant]
     Active Substance: AZASETRON HYDROCHLORIDE
     Dosage: 10 MG, UNK
     Route: 041
     Dates: start: 20160307, end: 20160307
  5. LEVOFLOXACIN HEMIHYDRATE [Concomitant]
     Active Substance: LEVOFLOXACIN
     Dosage: 500 MG, UNK
     Route: 065
     Dates: start: 20160314
  6. CISPLATIN. [Concomitant]
     Active Substance: CISPLATIN
     Indication: NON-SMALL CELL LUNG CANCER
     Dosage: 130 MG, UNK
     Route: 041
     Dates: start: 20160229, end: 20160229
  7. ZOSYN [Concomitant]
     Active Substance: PIPERACILLIN SODIUM\TAZOBACTAM SODIUM
     Dosage: UNK
     Route: 042
     Dates: start: 20160318, end: 20160322
  8. SEISHOKU [Concomitant]
     Active Substance: SODIUM CHLORIDE
     Dosage: 200 ML, UNK
     Route: 041
     Dates: start: 20160307, end: 20160307
  9. MAGNESOL [Concomitant]
     Dosage: 20 ML, UNK
     Route: 041
     Dates: start: 20160229, end: 20160229
  10. DECADRON [Concomitant]
     Active Substance: DEXAMETHASONE
     Dosage: 16 MG, UNK
     Route: 041
     Dates: start: 20160229, end: 20160229
  11. MANNITOL. [Concomitant]
     Active Substance: MANNITOL
     Dosage: 300 ML, UNK
     Route: 041
     Dates: start: 20160229, end: 20160229
  12. CISPLATIN. [Concomitant]
     Active Substance: CISPLATIN
     Indication: LUNG NEOPLASM MALIGNANT
     Dosage: UNK
     Route: 041
     Dates: start: 20160307
  13. LACTEC [Concomitant]
     Active Substance: CALCIUM CHLORIDE ANHYDROUS\POTASSIUM CHLORIDE\SODIUM CHLORIDE\SODIUM LACTATE
     Dosage: 500 ML, UNK
     Route: 041
     Dates: start: 20160301, end: 20160302
  14. NAVELBINE [Concomitant]
     Active Substance: VINORELBINE TARTRATE
     Indication: LUNG NEOPLASM MALIGNANT
  15. LOXONIN [Concomitant]
     Active Substance: LOXOPROFEN SODIUM
     Dosage: UNK
     Route: 065
  16. CRAVIT [Concomitant]
     Active Substance: LEVOFLOXACIN
     Dosage: UNK
     Route: 048
     Dates: start: 20160318
  17. SOLDEM 3A [Concomitant]
     Active Substance: CARBOHYDRATES\POTASSIUM CHLORIDE\SODIUM CHLORIDE\SODIUM LACTATE
     Dosage: 500 ML, UNK
     Route: 041
     Dates: start: 20160229, end: 20160302
  18. DECADRON [Concomitant]
     Active Substance: DEXAMETHASONE
     Dosage: 8 MG, UNK
     Route: 041
     Dates: start: 20160301, end: 20160302
  19. NAVELBINE [Concomitant]
     Active Substance: VINORELBINE TARTRATE
     Indication: NON-SMALL CELL LUNG CANCER
     Dosage: 40 MG, 1X/WEEK
     Route: 041
     Dates: start: 20160229, end: 20160307
  20. NAIXAN                             /00256201/ [Concomitant]
     Active Substance: NAPROXEN
     Dosage: UNK
     Route: 048
  21. SEISHOKU [Concomitant]
     Active Substance: SODIUM CHLORIDE
     Dosage: 50 ML, UNK
     Route: 041
     Dates: start: 20160301, end: 20160302
  22. MEROPEN                            /01250501/ [Concomitant]
     Active Substance: MEROPENEM
     Dosage: 1.5 G, UNK
     Route: 041
     Dates: start: 20160323
  23. SEISHOKU [Concomitant]
     Active Substance: SODIUM CHLORIDE
     Dosage: 2000 ML, UNK
     Route: 041
     Dates: start: 20160229, end: 20160229
  24. DECADRON [Concomitant]
     Active Substance: DEXAMETHASONE
     Dosage: 8 MG, UNK
     Route: 041
     Dates: start: 20160307, end: 20160307

REACTIONS (6)
  - Cardiac failure [Unknown]
  - Pyrexia [Recovered/Resolved]
  - Atrial fibrillation [Unknown]
  - Pleural effusion [Unknown]
  - Acute febrile neutrophilic dermatosis [Unknown]
  - C-reactive protein increased [Recovered/Resolved]

NARRATIVE: CASE EVENT DATE: 20160314
